FAERS Safety Report 4631185-X (Version None)
Quarter: 2005Q2

REPORT INFORMATION
  Report Type: 
  Country: None (occurrence: None)
  Receive Date: 20050406
  Receipt Date: 20050321
  Transmission Date: 20051028
  Serious: Yes (Hospitalization, Other)
  Sender: FDA-Public Use
  Company Number: 2005BI002493

PATIENT
  Age: 41 Year
  Sex: Female

DRUGS (11)
  1. AVONEX [Suspect]
     Indication: MULTIPLE SCLEROSIS
     Dosage: IM
     Route: 030
     Dates: start: 19980101, end: 20010401
  2. NATALIZUMAB [Suspect]
     Indication: MULTIPLE SCLEROSIS
     Dosage: 300 MG QM IV
     Route: 042
     Dates: start: 20050117, end: 20050117
  3. BACLOFEN [Concomitant]
  4. CYMBALTA [Concomitant]
  5. LAMICTAL [Concomitant]
  6. LEVOXYL [Concomitant]
  7. METFORMIN HCL [Concomitant]
  8. LANTUS [Concomitant]
  9. NOVOLOG [Concomitant]
  10. KLONOPIN [Concomitant]
  11. PRENATAL MULTIVITAMINS [Concomitant]

REACTIONS (6)
  - CIRCULATORY COLLAPSE [None]
  - DEPRESSION [None]
  - GAIT DISTURBANCE [None]
  - HYPOGLYCAEMIA [None]
  - PARALYSIS [None]
  - PERSONALITY CHANGE [None]
